FAERS Safety Report 10685464 (Version 2)
Quarter: 2015Q1

REPORT INFORMATION
  Report Type: Report from Study
  Country: US (occurrence: US)
  Receive Date: 20141231
  Receipt Date: 20150116
  Transmission Date: 20150720
  Serious: Yes (Death, Other)
  Sender: FDA-Public Use
  Company Number: US-PFIZER INC-2014357197

PATIENT

DRUGS (2)
  1. GEMCITABINE HYDROCHLORIDE. [Suspect]
     Active Substance: GEMCITABINE HYDROCHLORIDE
     Indication: RENAL CELL CARCINOMA
     Dosage: 1500 MG/M2, OVER 30 MIN EVERY 2 WEEKS, CYCLICALLY
     Route: 042
  2. DOXORUBICIN HCL [Suspect]
     Active Substance: DOXORUBICIN HYDROCHLORIDE
     Indication: RENAL CELL CARCINOMA
     Dosage: 50 MG/M2, OVER 30 MIN EVERY 2 WEEKS, CYCLICALLY
     Route: 042

REACTIONS (2)
  - Left ventricular dysfunction [Unknown]
  - Multi-organ failure [Fatal]
